FAERS Safety Report 17671584 (Version 1)
Quarter: 2020Q2

REPORT INFORMATION
  Report Type: Spontaneous
  Country: US (occurrence: US)
  Receive Date: 20200415
  Receipt Date: 20200415
  Transmission Date: 20200713
  Serious: Yes (Other)
  Sender: FDA-Public Use
  Company Number: US-NAPPMUNDI-USA-2020-0151689

PATIENT
  Age: 57 Year
  Sex: Male

DRUGS (1)
  1. OXYCODONE HYDROCHLORIDE (SIMILAR TO NDA 22-272) [Suspect]
     Active Substance: OXYCODONE HYDROCHLORIDE
     Indication: PROCEDURAL PAIN
     Dosage: 325 MG, QID
     Route: 048
     Dates: start: 2008, end: 201901

REACTIONS (5)
  - Drug dependence [Unknown]
  - Drug abuse [Unknown]
  - Spinal nerve stimulator implantation [Unknown]
  - Overdose [Unknown]
  - Medical device implantation [Unknown]

NARRATIVE: CASE EVENT DATE: 201901
